FAERS Safety Report 5515424-9 (Version None)
Quarter: 2007Q4

REPORT INFORMATION
  Report Type: 
  Country: None (occurrence: None)
  Receive Date: 20071113
  Receipt Date: 20070213
  Transmission Date: 20080405
  Serious: No
  Sender: FDA-Public Use
  Company Number: A0639516A

PATIENT
  Age: 66 Year
  Sex: Female

DRUGS (8)
  1. COREG [Suspect]
     Dosage: 6.25MG TWICE PER DAY
     Route: 048
     Dates: start: 20051201
  2. PLAVIX [Concomitant]
  3. VYTORIN [Concomitant]
  4. FOSAMAX [Concomitant]
  5. ASPIRIN [Concomitant]
  6. VITAMIN [Concomitant]
  7. CALCIUM [Concomitant]
  8. PRILOSEC [Concomitant]

REACTIONS (3)
  - DIZZINESS [None]
  - HEART RATE IRREGULAR [None]
  - HYPOTENSION [None]
